FAERS Safety Report 7459423-9 (Version None)
Quarter: 2011Q2

REPORT INFORMATION
  Report Type: 
  Country: None (occurrence: None)
  Receive Date: 20110505
  Receipt Date: 20110425
  Transmission Date: 20111010
  Serious: Yes (Death)
  Sender: FDA-Public Use
  Company Number: JP-JNJFOC-20110411350

PATIENT
  Age: 37 Year
  Sex: Male

DRUGS (4)
  1. INVEGA [Suspect]
     Indication: SCHIZOPHRENIA
     Route: 048
  2. ZYPREXA [Suspect]
     Route: 048
  3. ZYPREXA [Suspect]
     Indication: SCHIZOPHRENIA
     Route: 048
  4. INVEGA [Suspect]
     Route: 048

REACTIONS (3)
  - CARDIAC FAILURE [None]
  - MOOD ALTERED [None]
  - SALIVARY HYPERSECRETION [None]
